FAERS Safety Report 23197393 (Version 1)
Quarter: 2023Q4

REPORT INFORMATION
  Report Type: Spontaneous
  Country: IL (occurrence: IL)
  Receive Date: 20231117
  Receipt Date: 20231117
  Transmission Date: 20240109
  Serious: Yes (Other)
  Sender: FDA-Public Use
  Company Number: IL-SUN PHARMACEUTICAL INDUSTRIES LTD-2023R1-418646

PATIENT
  Age: 53 Year
  Sex: Male

DRUGS (2)
  1. DICLOFENAC [Suspect]
     Active Substance: DICLOFENAC
     Indication: Viral infection
     Dosage: UNK (75 MG)
     Route: 030
  2. DICLOFENAC [Suspect]
     Active Substance: DICLOFENAC
     Indication: Dehydration

REACTIONS (1)
  - Haemorrhage intracranial [Recovering/Resolving]
